FAERS Safety Report 23326929 (Version 1)
Quarter: 2023Q4

REPORT INFORMATION
  Report Type: Report from Study
  Country: US (occurrence: US)
  Receive Date: 20231221
  Receipt Date: 20231221
  Transmission Date: 20240110
  Serious: Yes (Other)
  Sender: FDA-Public Use
  Company Number: US-BIOVITRUM-2023-US-010941

PATIENT
  Age: 57 Year
  Sex: Female

DRUGS (2)
  1. KINERET [Suspect]
     Active Substance: ANAKINRA
     Indication: Lung disorder
     Dosage: ONCE DAILY
     Route: 058
     Dates: start: 20230428
  2. KINERET [Suspect]
     Active Substance: ANAKINRA
     Indication: Rheumatoid arthritis

REACTIONS (5)
  - Pulmonary embolism [Unknown]
  - Sinusitis [Unknown]
  - Contusion [Unknown]
  - Fear of falling [Unknown]
  - Injection site pain [Unknown]
